FAERS Safety Report 7569610-7 (Version None)
Quarter: 2011Q2

REPORT INFORMATION
  Report Type: 
  Country: None (occurrence: None)
  Receive Date: 20110617
  Receipt Date: 20110606
  Transmission Date: 20111010
  Serious: Yes (Hospitalization)
  Sender: FDA-Public Use
  Company Number: DE-2011-1263

PATIENT
  Age: 60 Year
  Sex: Female
  Weight: 107 kg

DRUGS (6)
  1. L-THYROXIN. MFR: NOT SPECIFIED [Concomitant]
  2. DELIX PLUS [Concomitant]
  3. CISPLATIN [Suspect]
     Indication: NON-SMALL CELL LUNG CANCER
     Dosage: 100 MG IV
     Route: 042
     Dates: start: 20110318, end: 20110524
  4. NAVELBINE [Suspect]
     Indication: NON-SMALL CELL LUNG CANCER
     Dosage: 40 MG IV
     Route: 042
     Dates: start: 20110523, end: 20110531
  5. PACLITAXEL [Concomitant]
  6. FLUOXETINE HCL [Concomitant]

REACTIONS (1)
  - BLOOD CREATININE INCREASED [None]
